FAERS Safety Report 12457222 (Version 1)
Quarter: 2016Q2

REPORT INFORMATION
  Report Type: Spontaneous
  Country: US (occurrence: US)
  Receive Date: 20160610
  Receipt Date: 20160610
  Transmission Date: 20160815
  Serious: Yes (Other)
  Sender: FDA-Public Use
  Company Number: US-PFIZER INC-2016290836

PATIENT
  Age: 31 Year
  Sex: Male
  Weight: 86 kg

DRUGS (1)
  1. VIAGRA [Suspect]
     Active Substance: SILDENAFIL CITRATE
     Dosage: 50 MG, TAKEN TWICE
     Dates: start: 20160604

REACTIONS (3)
  - Intentional product misuse [Unknown]
  - Erection increased [Not Recovered/Not Resolved]
  - Male orgasmic disorder [Unknown]

NARRATIVE: CASE EVENT DATE: 20160604
